FAERS Safety Report 9709109 (Version 1)
Quarter: 2013Q4

REPORT INFORMATION
  Report Type: Spontaneous
  Country: US (occurrence: US)
  Receive Date: 20131125
  Receipt Date: 20131125
  Transmission Date: 20140711
  Serious: Yes (Other)
  Sender: FDA-Public Use
  Company Number: US-ACORDA-ACO_100403_2013

PATIENT
  Age: 85 Year
  Sex: Male
  Weight: 74.83 kg

DRUGS (4)
  1. ZANAFLEX [Suspect]
     Indication: AMYOTROPHIC LATERAL SCLEROSIS
     Dosage: TIZANIDINE UNK
     Route: 048
     Dates: end: 2012
  2. ZANAFLEX [Suspect]
     Dosage: ZANAFLEX UNK
     Route: 048
     Dates: start: 2012
  3. CIPRO [Suspect]
     Indication: GASTROINTESTINAL BACTERIAL INFECTION
     Dosage: UNK,UNK
     Route: 048
     Dates: start: 201012, end: 201012
  4. SIMVASTATIN [Concomitant]
     Indication: PRODUCT USED FOR UNKNOWN INDICATION
     Dosage: UNK,UNK
     Route: 065

REACTIONS (3)
  - Unresponsive to stimuli [Recovered/Resolved]
  - Gastrointestinal bacterial infection [Recovered/Resolved]
  - Allergic respiratory symptom [Not Recovered/Not Resolved]
